FAERS Safety Report 7264394-4 (Version None)
Quarter: 2011Q1

REPORT INFORMATION
  Report Type: 
  Country: None (occurrence: None)
  Receive Date: 20110131
  Receipt Date: 20110118
  Transmission Date: 20110831
  Serious: No
  Sender: FDA-Public Use
  Company Number: US-BIOGENIDEC-2011BI002892

PATIENT
  Age: 62 Year
  Sex: Female

DRUGS (1)
  1. AVONEX [Suspect]
     Indication: MULTIPLE SCLEROSIS
     Route: 030
     Dates: start: 20090408

REACTIONS (5)
  - HEARING IMPAIRED [None]
  - INFLUENZA LIKE ILLNESS [None]
  - NECK PAIN [None]
  - MIGRAINE [None]
  - NAUSEA [None]
